FAERS Safety Report 9059509 (Version 2)
Quarter: 2013Q1

REPORT INFORMATION
  Report Type: Spontaneous
  Country: JP (occurrence: JP)
  Receive Date: 20130211
  Receipt Date: 20130227
  Transmission Date: 20140127
  Serious: Yes (Other)
  Sender: FDA-Public Use
  Company Number: JP-TEVA-384771ISR

PATIENT
  Age: 76 Year
  Sex: Female

DRUGS (2)
  1. PREDNISOLONE [Suspect]
     Indication: AUTOIMMUNE HEPATITIS
     Dosage: 40 MILLIGRAM DAILY; 40 MG/DAY
     Route: 048
  2. URSODEOXYCHOLIC ACID [Concomitant]
     Dosage: 600MG
     Route: 065

REACTIONS (1)
  - Pneumocystis jirovecii pneumonia [Recovering/Resolving]
